FAERS Safety Report 9288044 (Version 1)
Quarter: 2013Q2

REPORT INFORMATION
  Report Type: Report from Study
  Country: US (occurrence: US)
  Receive Date: 20130514
  Receipt Date: 20130514
  Transmission Date: 20140414
  Serious: Yes (Hospitalization)
  Sender: FDA-Public Use
  Company Number: US-JNJFOC-20130110639

PATIENT
  Age: 69 Year
  Sex: Female
  Weight: 73.94 kg

DRUGS (47)
  1. DOXORUBICIN HYDROCHLORIDE [Suspect]
     Indication: OVARIAN CANCER
     Route: 042
     Dates: start: 20121219
  2. DOXORUBICIN HYDROCHLORIDE [Suspect]
     Indication: OVARIAN CANCER
     Route: 042
     Dates: start: 20120827, end: 20121119
  3. EC145 [Suspect]
     Indication: OVARIAN CANCER
     Dosage: EVERY SECOND WEEK
     Route: 042
     Dates: start: 20121205, end: 20121221
  4. EC145 [Suspect]
     Indication: OVARIAN CANCER
     Dosage: EVERY SECOND WEEK
     Route: 042
     Dates: start: 20120827
  5. PLACEBO [Suspect]
     Indication: OVARIAN CANCER
     Dosage: EVERY SECOND WEEK
     Route: 042
     Dates: start: 20121205, end: 20121221
  6. PLACEBO [Suspect]
     Indication: OVARIAN CANCER
     Dosage: EVERY SECOND WEEK
     Route: 042
     Dates: start: 20120827
  7. EC20 [Suspect]
     Indication: OVARIAN CANCER
     Route: 042
     Dates: start: 20120816, end: 20120816
  8. FOLIC ACID [Suspect]
     Indication: OVARIAN CANCER
     Route: 042
     Dates: start: 20120816, end: 20120816
  9. ALOXI [Concomitant]
     Route: 065
     Dates: start: 20120827, end: 20121119
  10. ALOXI [Concomitant]
     Route: 065
     Dates: start: 20130122
  11. ALOXI [Concomitant]
     Route: 065
     Dates: start: 20121219, end: 20121219
  12. A + D OINTMENT [Concomitant]
     Indication: PALMAR-PLANTAR ERYTHRODYSAESTHESIA SYNDROME
     Route: 061
     Dates: start: 20121203
  13. CALCITRIOL [Concomitant]
     Indication: PRODUCT USED FOR UNKNOWN INDICATION
     Dosage: TAKE EVERYDAY ON MONDAY, WEDNESDAY, FRIDAY AND SUNDAY
     Route: 048
     Dates: start: 20121012
  14. NORCO [Concomitant]
     Indication: PAIN
     Dosage: AS REQUIRED
     Route: 048
     Dates: start: 20121121
  15. ALL OTHER THERAPEUTIC PRODUCTS [Concomitant]
     Indication: PRODUCT USED FOR UNKNOWN INDICATION
     Route: 061
     Dates: start: 20121012
  16. COUMADIN [Concomitant]
     Indication: DEEP VEIN THROMBOSIS
     Route: 048
     Dates: start: 20120904
  17. COUMADIN [Concomitant]
     Indication: DEEP VEIN THROMBOSIS
     Route: 048
     Dates: start: 201202
  18. COUMADIN [Concomitant]
     Indication: EMBOLISM
     Route: 048
     Dates: start: 201202
  19. COUMADIN [Concomitant]
     Indication: EMBOLISM
     Route: 048
     Dates: start: 20120904
  20. COUMADIN [Concomitant]
     Indication: ANTICOAGULANT THERAPY
     Route: 048
     Dates: start: 20120904
  21. COUMADIN [Concomitant]
     Indication: ANTICOAGULANT THERAPY
     Route: 048
     Dates: start: 201202
  22. LEXAPRO [Concomitant]
     Indication: PRODUCT USED FOR UNKNOWN INDICATION
     Route: 048
     Dates: start: 20120913
  23. ZOFRAN [Concomitant]
     Indication: VOMITING
     Route: 060
     Dates: start: 20120426, end: 20121227
  24. ZOFRAN [Concomitant]
     Indication: NAUSEA
     Route: 060
     Dates: start: 20120426, end: 20121227
  25. COMPAZINE [Concomitant]
     Indication: VOMITING
     Route: 048
     Dates: start: 20110101
  26. COMPAZINE [Concomitant]
     Indication: NAUSEA
     Route: 048
     Dates: start: 20110101
  27. MAGIC MOUTHWASH [Concomitant]
     Indication: PRODUCT USED FOR UNKNOWN INDICATION
     Dosage: ALTERNATIVE DAYS
     Route: 048
     Dates: start: 20121003
  28. MAGIC MOUTHWASH [Concomitant]
     Indication: PRODUCT USED FOR UNKNOWN INDICATION
     Dosage: ALTERNATIVE DAYS
     Route: 048
     Dates: start: 20121212
  29. NEXIUM [Concomitant]
     Indication: PRODUCT USED FOR UNKNOWN INDICATION
     Route: 048
     Dates: start: 20100101
  30. AMBIEN [Concomitant]
     Indication: INSOMNIA
     Route: 048
     Dates: start: 20120622
  31. MICRO K [Concomitant]
     Indication: PRODUCT USED FOR UNKNOWN INDICATION
     Route: 048
     Dates: start: 20121220
  32. MAG OX [Concomitant]
     Indication: PRODUCT USED FOR UNKNOWN INDICATION
     Dosage: 200-400 MG TABLETS EVERY DAY
     Route: 048
     Dates: start: 20120910
  33. PREMARIN [Concomitant]
     Indication: PRODUCT USED FOR UNKNOWN INDICATION
     Dosage: 3 WEEKS ON, 1 WEEK OFF, 1 APPLICATION EVERY WEDNESDAY
     Route: 067
     Dates: start: 20120101
  34. PREMARIN [Concomitant]
     Indication: PRODUCT USED FOR UNKNOWN INDICATION
     Dosage: 3 WEEKS ON, 1 WEEK OFF, 1 APPLICATION EVERY WEDNESDAY
     Route: 067
  35. MIRALAX [Concomitant]
     Indication: PRODUCT USED FOR UNKNOWN INDICATION
     Dosage: 1/2 DOSE IF STOOLS ARE WATERY (17 G, AS REQUIRED)
     Route: 048
     Dates: start: 20120910
  36. PROBIOTIC [Concomitant]
     Indication: PRODUCT USED FOR UNKNOWN INDICATION
     Dosage: 1 LAB
     Route: 048
     Dates: start: 20120814
  37. SALT [Concomitant]
     Indication: PRODUCT USED FOR UNKNOWN INDICATION
     Route: 048
     Dates: start: 20120815
  38. METOPROLOL [Concomitant]
     Indication: PRODUCT USED FOR UNKNOWN INDICATION
     Route: 048
     Dates: start: 20120913
  39. METOPROLOL [Concomitant]
     Indication: PRODUCT USED FOR UNKNOWN INDICATION
     Route: 048
     Dates: start: 20121212
  40. SYNTHROID [Concomitant]
     Indication: PRODUCT USED FOR UNKNOWN INDICATION
     Route: 065
     Dates: start: 20121212
  41. SYNTHROID [Concomitant]
     Indication: PRODUCT USED FOR UNKNOWN INDICATION
     Route: 065
     Dates: start: 20120913
  42. HYDROCODONE ACETAMINOPHEN [Concomitant]
     Indication: PAIN
     Dosage: 5-325 MG, AS NEEDED
     Route: 048
  43. SODIUM CHLORIDE [Concomitant]
     Indication: PRODUCT USED FOR UNKNOWN INDICATION
     Route: 048
  44. SODIUM BICARBONATE [Concomitant]
     Indication: PRODUCT USED FOR UNKNOWN INDICATION
     Route: 048
  45. COENZYME Q [Concomitant]
     Indication: PRODUCT USED FOR UNKNOWN INDICATION
     Route: 048
  46. DECADRON [Concomitant]
     Route: 042
     Dates: start: 20120827, end: 20121119
  47. DECADRON [Concomitant]
     Route: 042
     Dates: start: 20121219, end: 20121219

REACTIONS (2)
  - Small intestinal obstruction [Recovered/Resolved]
  - Gastrointestinal haemorrhage [Recovered/Resolved]
